FAERS Safety Report 14072310 (Version 1)
Quarter: 2017Q4

REPORT INFORMATION
  Report Type: Spontaneous
  Country: US (occurrence: None)
  Receive Date: 20171010
  Receipt Date: 20171010
  Transmission Date: 20180321
  Serious: Yes (Hospitalization)
  Sender: FDA-Public Use
  Company Number: None

PATIENT
  Age: 52 Year
  Sex: Male

DRUGS (12)
  1. OPDIVO [Suspect]
     Active Substance: NIVOLUMAB
     Indication: RENAL CANCER
     Route: 042
     Dates: start: 20170926
  2. EFFEXOR [Concomitant]
     Active Substance: VENLAFAXINE HYDROCHLORIDE
  3. ALBUTEROL. [Concomitant]
     Active Substance: ALBUTEROL
  4. NORVASC [Concomitant]
     Active Substance: AMLODIPINE BESYLATE
  5. COZAAR [Concomitant]
     Active Substance: LOSARTAN POTASSIUM
  6. SIMVASTATIN. [Concomitant]
     Active Substance: SIMVASTATIN
  7. BUPROPN [Concomitant]
  8. ZOCOR [Concomitant]
     Active Substance: SIMVASTATIN
  9. OXYCODONE [Concomitant]
     Active Substance: OXYCODONE
  10. ZOLEDRONIC ACID [Suspect]
     Active Substance: ZOLEDRONIC ACID
     Indication: RENAL CANCER
     Route: 042
     Dates: start: 20170925
  11. FENTANYL. [Concomitant]
     Active Substance: FENTANYL
  12. AMLODIPINE [Concomitant]
     Active Substance: AMLODIPINE BESYLATE

REACTIONS (2)
  - Joint dislocation [None]
  - Unevaluable event [None]

NARRATIVE: CASE EVENT DATE: 20171001
